FAERS Safety Report 24120868 (Version 2)
Quarter: 2024Q3

REPORT INFORMATION
  Report Type: Spontaneous
  Country: US (occurrence: US)
  Receive Date: 20240722
  Receipt Date: 20240731
  Transmission Date: 20241017
  Serious: Yes (Other)
  Sender: ABBVIE
  Company Number: US-ABBVIE-5846185

PATIENT
  Age: 66 Year
  Sex: Female

DRUGS (1)
  1. REFRESH TEARS [Suspect]
     Active Substance: CARBOXYMETHYLCELLULOSE SODIUM
     Indication: Dry eye
     Dosage: PF
     Route: 047

REACTIONS (4)
  - Corneal disorder [Unknown]
  - Eye irritation [Recovered/Resolved]
  - Superficial injury of eye [Recovered/Resolved]
  - Corneal disorder [Unknown]

NARRATIVE: CASE EVENT DATE: 20240701
